FAERS Safety Report 7060906-4 (Version None)
Quarter: 2010Q4

REPORT INFORMATION
  Report Type: 
  Country: None (occurrence: None)
  Receive Date: 20101025
  Receipt Date: 20101013
  Transmission Date: 20110411
  Serious: Yes (Hospitalization, Other)
  Sender: FDA-Public Use
  Company Number: PHHY2010BR69285

PATIENT
  Sex: Female

DRUGS (3)
  1. ACLASTA [Suspect]
     Indication: OSTEOPOROSIS
     Dosage: 5 MG/100 ML
     Dates: start: 20090801
  2. HIDANTAL [Concomitant]
     Indication: MENINGIOMA
     Dosage: 100 MG, 2 TABLETS DAILY
     Route: 048
     Dates: start: 20100501
  3. PONDERAL [Concomitant]
     Indication: MENINGIOMA
     Dosage: 20 MG, ORAL 1 TABLET DAILY
     Route: 048
     Dates: start: 20100501

REACTIONS (4)
  - HEADACHE [None]
  - MENINGIOMA [None]
  - OSTEOMYELITIS [None]
  - SURGERY [None]
